FAERS Safety Report 9501857 (Version 1)
Quarter: 2013Q1

REPORT INFORMATION
  Report Type: Spontaneous
  Country: US (occurrence: None)
  Receive Date: 20130116
  Receipt Date: 20130116
  Transmission Date: 20140127
  Serious: Yes (Hospitalization, Other)
  Sender: FDA-Public Use
  Company Number: 406966

PATIENT
  Sex: Female

DRUGS (1)
  1. HEPARIN SODIUM [Suspect]
     Indication: PRODUCT USED FOR UNKNOWN INDICATION
     Dates: start: 20070904

REACTIONS (6)
  - Gangrene [None]
  - Heparin-induced thrombocytopenia [None]
  - Deep vein thrombosis [None]
  - Atrial fibrillation [None]
  - Sinus tachycardia [None]
  - Injury [None]
